FAERS Safety Report 9486091 (Version 1)
Quarter: 2013Q3

REPORT INFORMATION
  Report Type: Report from Study
  Country: JP (occurrence: JP)
  Receive Date: 20130829
  Receipt Date: 20130829
  Transmission Date: 20140515
  Serious: No
  Sender: FDA-Public Use
  Company Number: JP-JNJFOC-20130814945

PATIENT
  Sex: Male

DRUGS (7)
  1. ONEDURO [Suspect]
     Indication: CANCER PAIN
     Route: 062
     Dates: start: 20130419, end: 20130501
  2. PARIET [Concomitant]
     Indication: CANCER PAIN
     Route: 048
  3. ULCERLMIN [Concomitant]
     Indication: CANCER PAIN
     Route: 048
  4. TSUMARA RIKKUNSHITO EXTRACT GRANULES [Concomitant]
     Indication: CANCER PAIN
     Route: 048
  5. FERROMIA [Concomitant]
     Indication: CANCER PAIN
     Route: 048
  6. PURSENNID [Concomitant]
     Indication: CANCER PAIN
     Route: 048
     Dates: start: 20130419
  7. CELECOX [Concomitant]
     Indication: CANCER PAIN
     Route: 048
     Dates: start: 20130419

REACTIONS (1)
  - Drug intolerance [Unknown]
